FAERS Safety Report 20424831 (Version 1)
Quarter: 2022Q1

REPORT INFORMATION
  Report Type: Report from Study
  Country: CA (occurrence: CA)
  Receive Date: 20220204
  Receipt Date: 20220204
  Transmission Date: 20220424
  Serious: No
  Sender: FDA-Public Use
  Company Number: CA-EXELIXIS-CABO-21038003

PATIENT
  Age: 38 Year
  Sex: Female
  Weight: 59 kg

DRUGS (1)
  1. CABOMETYX [Suspect]
     Active Substance: CABOZANTINIB S-MALATE
     Indication: Sarcoma metastatic
     Dosage: 60 MG, QD
     Route: 048
     Dates: start: 20210125

REACTIONS (3)
  - Fatigue [Unknown]
  - Diarrhoea [Unknown]
  - Off label use [Unknown]

NARRATIVE: CASE EVENT DATE: 20210212
